FAERS Safety Report 19287039 (Version 1)
Quarter: 2021Q2

REPORT INFORMATION
  Report Type: Spontaneous
  Country: AU (occurrence: AU)
  Receive Date: 20210521
  Receipt Date: 20210521
  Transmission Date: 20210717
  Serious: Yes (Hospitalization)
  Sender: FDA-Public Use
  Company Number: AU-BAXTER-2021BAX011718

PATIENT
  Age: 43 Year
  Sex: Female

DRUGS (2)
  1. BAXTER 0.9% SODIUM CHLORIDE 9G_L INJECTION BP BAG AHB1324 [Suspect]
     Active Substance: SODIUM CHLORIDE
     Indication: MEDICATION DILUTION
     Route: 042
     Dates: start: 20210428, end: 20210428
  2. FENTANYL. [Suspect]
     Active Substance: FENTANYL
     Indication: PROCEDURAL PAIN
     Dosage: 1000MCG/50 ML PCA SYRINGE
     Route: 042
     Dates: start: 20210428, end: 20210428

REACTIONS (1)
  - Drug ineffective [Unknown]

NARRATIVE: CASE EVENT DATE: 20210428
